FAERS Safety Report 6419610-5 (Version None)
Quarter: 2009Q4

REPORT INFORMATION
  Report Type: 
  Country: None (occurrence: None)
  Receive Date: 20091013
  Receipt Date: 20090423
  Transmission Date: 20100525
  Serious: Yes (Hospitalization)
  Sender: FDA-Public Use
  Company Number: 1000005208

PATIENT
  Age: 45 Year
  Sex: Female
  Weight: 89.3586 kg

DRUGS (9)
  1. LEXAPRO [Suspect]
     Indication: DEPRESSION
     Dosage: 20 MG (20 MG, 1 IN 1 D), ORAL, 40 MG (40 MG, 1 IN 1 D), ORAL
     Route: 048
     Dates: start: 20010101, end: 20081201
  2. LEXAPRO [Suspect]
     Indication: DEPRESSION
     Dosage: 20 MG (20 MG, 1 IN 1 D), ORAL, 40 MG (40 MG, 1 IN 1 D), ORAL
     Route: 048
     Dates: start: 20081201, end: 20090206
  3. LINACLOTIDE (CAPSULES) [Concomitant]
  4. PREMPRO [Concomitant]
  5. LUNESTA [Concomitant]
  6. ALEVE [Concomitant]
  7. DULCOLAX [Concomitant]
  8. ZITHROMAX [Concomitant]
  9. OMNARIS (NASAL DROPS (INCLUDING NASAL SPRAY) [Concomitant]

REACTIONS (3)
  - BRADYCARDIA [None]
  - ELECTROCARDIOGRAM QT PROLONGED [None]
  - SYNCOPE [None]
